FAERS Safety Report 8533795-6 (Version None)
Quarter: 2012Q3

REPORT INFORMATION
  Report Type: 
  Country: None (occurrence: None)
  Receive Date: 20120724
  Receipt Date: 20120717
  Transmission Date: 20120928
  Serious: Yes (Other)
  Sender: FDA-Public Use
  Company Number: US-ROCHE-1080319

PATIENT
  Sex: Female
  Weight: 79.45 kg

DRUGS (5)
  1. SPIRIVA [Concomitant]
     Indication: ASTHMA
     Dosage: 2 PUMPS DAILY , ROUTE: INHALATION
     Dates: start: 20110224
  2. DULERA [Concomitant]
     Indication: ASTHMA
     Dosage: 2 PUMPS, ROUTE: INHALATION
     Dates: start: 20110502
  3. SINGULAIR [Concomitant]
     Indication: ASTHMA
     Route: 048
     Dates: start: 20110206
  4. XOLAIR [Suspect]
     Indication: ASTHMA
     Route: 058
     Dates: start: 20120615
  5. PROVENTIL-HFA [Concomitant]
     Indication: ASTHMA
     Dosage: 2 PUFFS, ROUTE: INHALATION
     Dates: start: 20110206

REACTIONS (2)
  - TENDERNESS [None]
  - CHEST DISCOMFORT [None]
